FAERS Safety Report 7954457-X (Version None)
Quarter: 2011Q4

REPORT INFORMATION
  Report Type: 
  Country: None (occurrence: None)
  Receive Date: 20111202
  Receipt Date: 20111124
  Transmission Date: 20120403
  Serious: Yes (Death, Hospitalization)
  Sender: FDA-Public Use
  Company Number: CA-JNJFOC-20100807955

PATIENT
  Age: 83 Year
  Sex: Female

DRUGS (3)
  1. REMICADE [Suspect]
     Dosage: TOTAL OF 65 INFUSIONS
     Route: 042
     Dates: start: 20100624
  2. REMICADE [Suspect]
     Indication: RHEUMATOID ARTHRITIS
     Route: 042
     Dates: start: 20020516
  3. METHOTREXATE [Concomitant]
     Route: 048

REACTIONS (1)
  - MYOCARDIAL INFARCTION [None]
